FAERS Safety Report 5878734-1 (Version None)
Quarter: 2008Q3

REPORT INFORMATION
  Report Type: 
  Country: None (occurrence: None)
  Receive Date: 20080910
  Receipt Date: 20080827
  Transmission Date: 20090109
  Serious: Yes (Other)
  Sender: FDA-Public Use
  Company Number: US-1166978

PATIENT
  Age: 74 Year
  Sex: Female
  Weight: 49.8957 kg

DRUGS (6)
  1. SYSTANE EYE DROPS [Suspect]
     Indication: DRY EYE
     Dosage: (OPHTHALMIC)
     Route: 047
     Dates: start: 20071201, end: 20080501
  2. NATACYN [Suspect]
     Dosage: (OPHTHALMIC)
     Route: 047
     Dates: start: 20080601, end: 20080703
  3. OSCAL D [Concomitant]
  4. COLACE [Concomitant]
  5. ALEVE [Concomitant]
  6. FOSAMAX [Concomitant]

REACTIONS (7)
  - DRUG HYPERSENSITIVITY [None]
  - EAR PAIN [None]
  - EYE INFECTION FUNGAL [None]
  - GINGIVAL PAIN [None]
  - NO THERAPEUTIC RESPONSE [None]
  - OROPHARYNGEAL PAIN [None]
  - VISION BLURRED [None]
